FAERS Safety Report 18666639 (Version 1)
Quarter: 2020Q4

REPORT INFORMATION
  Report Type: Spontaneous
  Country: GB (occurrence: GB)
  Receive Date: 20201227
  Receipt Date: 20201227
  Transmission Date: 20210114
  Serious: Yes (Other)
  Sender: FDA-Public Use
  Company Number: GB-TEVA-2020-GB-1861368

PATIENT
  Age: 55 Year
  Sex: Male

DRUGS (9)
  1. BISOPROLOL [Suspect]
     Active Substance: BISOPROLOL
     Dosage: UNIT DOSE : 2.5 MG
     Route: 048
     Dates: start: 20200201
  2. ATORVASTATIN [Concomitant]
     Active Substance: ATORVASTATIN
     Dosage: UNIT DOSE : 40 MG
     Route: 048
  3. CANDESARTAN. [Concomitant]
     Active Substance: CANDESARTAN
     Dosage: UNIT DOSE : 32 MG
     Route: 048
  4. FUROSEMIDE. [Concomitant]
     Active Substance: FUROSEMIDE
     Dosage: UNIT DOSE : 40 MG
     Route: 048
  5. APIXABAN [Concomitant]
     Active Substance: APIXABAN
     Dosage: UNIT DOSE : 10 MG
     Route: 048
  6. OLANZAPINE EMBONATE [Suspect]
     Active Substance: OLANZAPINE
     Dosage: UNIT DOSE : 405 MG
     Route: 030
  7. AMLODIPINE [Concomitant]
     Active Substance: AMLODIPINE BESYLATE
     Dosage: UNIT DOSE : 10 MG
     Route: 048
  8. COLECALCIFEROL [Concomitant]
     Active Substance: CHOLECALCIFEROL
     Dosage: UNIT DOSE : 1000 IU
     Route: 048
  9. SODIUM VALPROATE [Suspect]
     Active Substance: VALPROATE SODIUM
     Dosage: 10MG/5ML , UNIT DOSE : 3 G
     Route: 048

REACTIONS (1)
  - Ejaculation disorder [Not Recovered/Not Resolved]

NARRATIVE: CASE EVENT DATE: 20200201
